FAERS Safety Report 7628299-9 (Version None)
Quarter: 2011Q3

REPORT INFORMATION
  Report Type: 
  Country: None (occurrence: None)
  Receive Date: 20110714
  Receipt Date: 20110706
  Transmission Date: 20111222
  Serious: Yes (Life-Threatening, Hospitalization)
  Sender: FDA-Public Use
  Company Number: LEO-2011-00564

PATIENT
  Age: 65 Year
  Sex: Female
  Weight: 115 kg

DRUGS (1)
  1. INNOHEP [Suspect]
     Indication: ATRIAL FIBRILLATION
     Dosage: 20000 IU FOR 5 DAYS, SUBCUTANEOUS
     Route: 058

REACTIONS (4)
  - RESPIRATORY TRACT HAEMORRHAGE [None]
  - OFF LABEL USE [None]
  - DYSPNOEA [None]
  - OVERDOSE [None]
